FAERS Safety Report 25993936 (Version 1)
Quarter: 2025Q4

REPORT INFORMATION
  Report Type: Spontaneous
  Country: CN (occurrence: CN)
  Receive Date: 20251104
  Receipt Date: 20251104
  Transmission Date: 20260117
  Serious: Yes (Other)
  Sender: PHARMOBEDIENT CONSULTING, LLC
  Company Number: CN-Pharmobedient-000411

PATIENT
  Age: 56 Year
  Sex: Male

DRUGS (4)
  1. GEMCITABINE [Suspect]
     Active Substance: GEMCITABINE
     Indication: Adenocarcinoma pancreas
     Dosage: DAYS 1 AND 8
     Dates: start: 20240720
  2. PACLITAXEL [Suspect]
     Active Substance: PACLITAXEL
     Indication: Adenocarcinoma pancreas
     Dosage: ON DAYS 1 AND 8
     Dates: start: 20240720
  3. NIMOTUZUMAB [Suspect]
     Active Substance: NIMOTUZUMAB
     Indication: Adenocarcinoma pancreas
     Dates: start: 20240720
  4. CADONILIMAB [Suspect]
     Active Substance: CADONILIMAB
     Indication: Adenocarcinoma pancreas
     Dates: start: 20240720

REACTIONS (2)
  - Haematotoxicity [Recovered/Resolved]
  - Hypothyroidism [Recovered/Resolved]

NARRATIVE: CASE EVENT DATE: 20241001
